FAERS Safety Report 8742448 (Version 3)
Quarter: 2012Q4

REPORT INFORMATION
  Report Type: 
  Country: US (occurrence: US)
  Receive Date: 20120824
  Receipt Date: 20121010
  Transmission Date: 20130627
  Serious: Yes (Other)
  Sender: FDA-Public Use
  Company Number: US-BRISTOL-MYERS SQUIBB COMPANY-16859399

PATIENT
  Sex: Male

DRUGS (1)
  1. BARACLUDE [Suspect]
     Dosage: Baraclude 1.5 mg tabs

REACTIONS (1)
  - Hepatocellular carcinoma [Unknown]
